FAERS Safety Report 7967663-5 (Version None)
Quarter: 2011Q4

REPORT INFORMATION
  Report Type: 
  Country: None (occurrence: None)
  Receive Date: 20111209
  Receipt Date: 20111130
  Transmission Date: 20120403
  Serious: Yes (Life-Threatening, Hospitalization)
  Sender: FDA-Public Use
  Company Number: FR-SANOFI-AVENTIS-2011SA078622

PATIENT
  Age: 45 Year
  Sex: Female

DRUGS (6)
  1. RIMIFON [Suspect]
     Indication: BONE TUBERCULOSIS
     Route: 048
     Dates: start: 20011025, end: 20020101
  2. RIFADIN [Suspect]
     Indication: BONE TUBERCULOSIS
     Route: 048
     Dates: start: 20011025, end: 20020101
  3. PYRAZINAMIDE [Concomitant]
     Indication: BONE TUBERCULOSIS
     Dosage: DOSE:3 UNIT(S)
     Route: 048
     Dates: start: 20011025, end: 20020101
  4. AMITRIPTYLINE HCL [Concomitant]
     Indication: HEADACHE
     Route: 048
     Dates: end: 20020204
  5. RIMIFON [Suspect]
     Route: 048
     Dates: start: 20020101, end: 20020204
  6. RIFADIN [Suspect]
     Route: 048
     Dates: start: 20020101, end: 20020204

REACTIONS (1)
  - HEPATITIS FULMINANT [None]
